FAERS Safety Report 8131146-2 (Version None)
Quarter: 2012Q1

REPORT INFORMATION
  Report Type: 
  Country: None (occurrence: None)
  Receive Date: 20120213
  Receipt Date: 20120201
  Transmission Date: 20120608
  Serious: No
  Sender: FDA-Public Use
  Company Number: US-JNJFOC-20120201625

PATIENT
  Sex: Male
  Weight: 75.3 kg

DRUGS (2)
  1. DIABETES MEDICATION [Concomitant]
     Indication: TYPE 2 DIABETES MELLITUS
     Route: 065
  2. DURAGESIC-100 [Suspect]
     Indication: NEURALGIA
     Dosage: (100UG/HR + 100 UG/HR)
     Route: 062
     Dates: start: 20070101

REACTIONS (2)
  - PRODUCT QUALITY ISSUE [None]
  - WRONG TECHNIQUE IN DRUG USAGE PROCESS [None]
